FAERS Safety Report 8972145 (Version 2)
Quarter: 2013Q1

REPORT INFORMATION
  Report Type: Spontaneous
  Country: US (occurrence: US)
  Receive Date: 20121218
  Receipt Date: 20130107
  Transmission Date: 20140127
  Serious: No
  Sender: FDA-Public Use
  Company Number: US-B.I. PHARMACEUTICALS,INC./RIDGEFIELD-2012-BI-03542BP

PATIENT
  Sex: 0

DRUGS (1)
  1. JENTADUETO [Suspect]

REACTIONS (2)
  - Gastrointestinal disorder [Unknown]
  - Diarrhoea [Unknown]
